FAERS Safety Report 6121401-X (Version None)
Quarter: 2009Q1

REPORT INFORMATION
  Report Type: 
  Country: None (occurrence: None)
  Receive Date: 20090313
  Receipt Date: 20090313
  Transmission Date: 20090719
  Serious: Yes (Other)
  Sender: FDA-Public Use
  Company Number: None

PATIENT
  Sex: Male
  Weight: 30.8446 kg

DRUGS (1)
  1. CETIRIZINE HCL [Suspect]
     Indication: SINUS CONGESTION
     Dosage: ONE CHEWABLE ONCE AT NIGHT PO
     Route: 048

REACTIONS (5)
  - CRYING [None]
  - DIZZINESS [None]
  - EAR DISORDER [None]
  - HALLUCINATION [None]
  - SPEECH DISORDER [None]
